FAERS Safety Report 21165961 (Version 1)
Quarter: 2022Q3

REPORT INFORMATION
  Report Type: Spontaneous
  Country: US (occurrence: US)
  Receive Date: 20220803
  Receipt Date: 20220803
  Transmission Date: 20221027
  Serious: No
  Sender: FDA-Public Use
  Company Number: US-BRISTOL-MYERS SQUIBB COMPANY-2022-083899

PATIENT
  Age: 59 Year
  Sex: Female

DRUGS (5)
  1. REVLIMID [Suspect]
     Active Substance: LENALIDOMIDE
     Indication: Follicular lymphoma
     Dosage: DOSE : 20MG;     FREQ : 21 DAYS ON 7 DAYS OFF
     Route: 048
     Dates: start: 202207
  2. LISINOPRIL [Concomitant]
     Active Substance: LISINOPRIL
     Indication: Product used for unknown indication
     Route: 065
  3. PREGABALIN [Concomitant]
     Active Substance: PREGABALIN
     Indication: Product used for unknown indication
     Route: 065
  4. XTAMPZA ER [Concomitant]
     Active Substance: OXYCODONE
     Indication: Product used for unknown indication
     Route: 065
  5. MONTELUKAST SODIUM [Concomitant]
     Active Substance: MONTELUKAST SODIUM
     Indication: Product used for unknown indication
     Route: 065

REACTIONS (5)
  - Confusional state [Unknown]
  - Gait disturbance [Unknown]
  - Rash [Unknown]
  - Blister [Unknown]
  - Pruritus [Unknown]

NARRATIVE: CASE EVENT DATE: 20220701
